FAERS Safety Report 10985243 (Version 1)
Quarter: 2015Q2

REPORT INFORMATION
  Report Type: Spontaneous
  Country: US (occurrence: US)
  Receive Date: 20150404
  Receipt Date: 20150404
  Transmission Date: 20150821
  Serious: No
  Sender: FDA-Public Use
  Company Number: US-SA-2014SA066982

PATIENT
  Age: 70 Year
  Sex: Male

DRUGS (3)
  1. ALLEGRA-D [Suspect]
     Active Substance: FEXOFENADINE\PSEUDOEPHEDRINE
     Indication: EYE PRURITUS
     Dosage: DOSAGE: 180MG/240 MG ONCE DAILY
     Route: 048
     Dates: start: 20140515, end: 20140515
  2. ALLEGRA-D [Suspect]
     Active Substance: FEXOFENADINE\PSEUDOEPHEDRINE
     Indication: NASAL CONGESTION
     Dosage: DOSAGE: 180MG/240 MG ONCE DAILY
     Route: 048
     Dates: start: 20140515, end: 20140515
  3. ALLEGRA-D [Suspect]
     Active Substance: FEXOFENADINE\PSEUDOEPHEDRINE
     Indication: RHINORRHOEA
     Dosage: DOSAGE: 180MG/240 MG ONCE DAILY
     Route: 048
     Dates: start: 20140515, end: 20140515

REACTIONS (1)
  - Drug ineffective [Unknown]
